FAERS Safety Report 5329591-3 (Version None)
Quarter: 2007Q2

REPORT INFORMATION
  Report Type: 
  Country: None (occurrence: None)
  Receive Date: 20070227
  Receipt Date: 20060310
  Transmission Date: 20071010
  Serious: Yes (Other)
  Sender: FDA-Public Use
  Company Number: 421750

PATIENT
  Sex: Female
  Weight: 2.9 kg

DRUGS (1)
  1. ACCUTANE [Suspect]
     Indication: ACNE
     Dosage: ORAL
     Route: 048
     Dates: start: 19990615, end: 20010615

REACTIONS (4)
  - BLOOD BILIRUBIN ABNORMAL [None]
  - NORMAL NEWBORN [None]
  - PREMATURE BABY [None]
  - PREMATURE LABOUR [None]
